FAERS Safety Report 7719010-1 (Version None)
Quarter: 2011Q3

REPORT INFORMATION
  Report Type: 
  Country: None (occurrence: None)
  Receive Date: 20110830
  Receipt Date: 20110822
  Transmission Date: 20111222
  Serious: Yes (Hospitalization)
  Sender: FDA-Public Use
  Company Number: JP-GLAXOSMITHKLINE-B0742398A

PATIENT
  Age: 21 Year
  Sex: Female

DRUGS (2)
  1. LAMICTAL [Suspect]
     Indication: EPILEPSY
     Dosage: 100MG PER DAY
     Route: 048
     Dates: start: 20110501, end: 20110601
  2. KEPPRA [Concomitant]
     Indication: EPILEPSY
     Dosage: 3000MG PER DAY
     Route: 048

REACTIONS (3)
  - PYREXIA [None]
  - HYPERTHERMIA [None]
  - RASH [None]
